FAERS Safety Report 15222742 (Version 2)
Quarter: 2018Q3

REPORT INFORMATION
  Report Type: Spontaneous
  Country: GB (occurrence: GB)
  Receive Date: 20180731
  Receipt Date: 20180809
  Transmission Date: 20181010
  Serious: Yes (Death, Other)
  Sender: FDA-Public Use
  Company Number: GB-SHIRE-GB201823830

PATIENT

DRUGS (10)
  1. OBIZUR [Suspect]
     Active Substance: ANTIHEMOPHILIC FACTOR PORCINE, B-DOMAIN TRUNCATED RECOMBINANT
     Dosage: 1500 IU, AS REQ^D
     Route: 042
     Dates: start: 20180703, end: 20180703
  2. FUROSEMIDE. [Concomitant]
     Active Substance: FUROSEMIDE
     Indication: CARDIAC FAILURE CONGESTIVE
  3. DIGOXIN. [Concomitant]
     Active Substance: DIGOXIN
     Indication: ATRIAL FIBRILLATION
  4. OBIZUR [Suspect]
     Active Substance: ANTIHEMOPHILIC FACTOR PORCINE, B-DOMAIN TRUNCATED RECOMBINANT
     Dosage: 1500 IU, AS REQ^D
     Route: 042
     Dates: start: 20180705, end: 20180705
  5. HUMULIN M3 [Concomitant]
     Active Substance: INSULIN HUMAN
     Indication: DIABETES MELLITUS
  6. OBIZUR [Suspect]
     Active Substance: ANTIHEMOPHILIC FACTOR PORCINE, B-DOMAIN TRUNCATED RECOMBINANT
     Indication: HAEMOPHILIA
     Dosage: 6000 IU, AS REQ^D
     Route: 042
     Dates: start: 20180702, end: 20180702
  7. BISOPROLOL [Concomitant]
     Active Substance: BISOPROLOL
     Indication: BLOOD PRESSURE MEASUREMENT
  8. AMILORIDE [Concomitant]
     Active Substance: AMILORIDE
     Indication: BLOOD PRESSURE MEASUREMENT
  9. OBIZUR [Suspect]
     Active Substance: ANTIHEMOPHILIC FACTOR PORCINE, B-DOMAIN TRUNCATED RECOMBINANT
     Dosage: 1500 IU, AS REQ^D
     Route: 042
     Dates: start: 20180706, end: 20180706
  10. OMEPRAZOLE. [Concomitant]
     Active Substance: OMEPRAZOLE
     Indication: GASTRITIS

REACTIONS (4)
  - Staphylococcal sepsis [Fatal]
  - Multiple organ dysfunction syndrome [Fatal]
  - Off label use [Unknown]
  - Renal impairment [Fatal]
